FAERS Safety Report 23469587 (Version 6)
Quarter: 2024Q3

REPORT INFORMATION
  Report Type: Report from Study
  Country: US (occurrence: US)
  Receive Date: 20240202
  Receipt Date: 20240801
  Transmission Date: 20241017
  Serious: No
  Sender: DECIPHERA PHARMACEUTICALS
  Company Number: US-DECIPHERA PHARMACEUTICALS LLC-2024US000058

PATIENT
  Age: 66 Year
  Sex: Female

DRUGS (3)
  1. QINLOCK [Suspect]
     Active Substance: RIPRETINIB
     Indication: Gastrointestinal stromal tumour
     Dosage: 150 MILLIGRAM, QD
     Route: 048
     Dates: start: 20230627
  2. QINLOCK [Suspect]
     Active Substance: RIPRETINIB
     Dosage: 150 MILLIGRAM, QD
     Route: 048
  3. QINLOCK [Suspect]
     Active Substance: RIPRETINIB
     Dosage: 150 MILLIGRAM, QD
     Route: 048

REACTIONS (13)
  - Heart rate irregular [Unknown]
  - Road traffic accident [Unknown]
  - Neck pain [Unknown]
  - Clavicle fracture [Unknown]
  - Back pain [Unknown]
  - Abdominal pain upper [Unknown]
  - Rash [Unknown]
  - Hypertension [Unknown]
  - Arthralgia [Unknown]
  - Stress [Unknown]
  - Anxiety [Unknown]
  - Depression [Unknown]
  - Product supply issue [Unknown]

NARRATIVE: CASE EVENT DATE: 20240301
